FAERS Safety Report 16746116 (Version 1)
Quarter: 2019Q3

REPORT INFORMATION
  Report Type: Spontaneous
  Country: US (occurrence: US)
  Receive Date: 20190709
  Receipt Date: 20190709
  Transmission Date: 20191005
  Serious: No
  Sender: FDA-Public Use
  Company Number: None

PATIENT
  Age: 56 Year
  Sex: Male
  Weight: 185.52 kg

DRUGS (1)
  1. TALTZ [Suspect]
     Active Substance: IXEKIZUMAB
     Indication: PSORIATIC ARTHROPATHY
     Dosage: INJECT 160MG (2 SYRINGES) SUBCUTANEOUSLY  AT WEEK 0  THEN 80 MG (1 SYRINGE) AT WEEK 2 AS DIRECT
     Route: 058
     Dates: start: 201906

REACTIONS (1)
  - Urticaria [None]
